FAERS Safety Report 11793028 (Version 1)
Quarter: 2015Q4

REPORT INFORMATION
  Report Type: Spontaneous
  Country: US (occurrence: None)
  Receive Date: 20151201
  Receipt Date: 20151201
  Transmission Date: 20160305
  Serious: No
  Sender: FDA-Public Use
  Company Number: None

PATIENT
  Sex: Female
  Weight: 83.92 kg

DRUGS (3)
  1. HCTZ 12.5MG/LOSARTAN 50MG [Concomitant]
  2. OXYBUTYNIN CL ER 10MG TABLETS, SUBSITUTED FOR DITROPAN XL 10MG [Suspect]
     Active Substance: OXYBUTYNIN\OXYBUTYNIN CHLORIDE
     Indication: HYPERTONIC BLADDER
     Dosage: ONCE A DAY BY MOUTH
     Route: 048
     Dates: start: 20151021, end: 20151031
  3. VITIMAN D + C [Concomitant]

REACTIONS (6)
  - Feeling abnormal [None]
  - Oropharyngeal pain [None]
  - Activities of daily living impaired [None]
  - Headache [None]
  - Insomnia [None]
  - Dry mouth [None]
